FAERS Safety Report 7246963-0 (Version None)
Quarter: 2011Q1

REPORT INFORMATION
  Report Type: 
  Country: None (occurrence: None)
  Receive Date: 20110127
  Receipt Date: 20110122
  Transmission Date: 20110831
  Serious: Yes (Other)
  Sender: FDA-Public Use
  Company Number: US-AMGEN-USASP2011001618

PATIENT
  Age: 58 Year
  Sex: Female

DRUGS (2)
  1. NPLATE [Suspect]
     Indication: THROMBOCYTOPENIA
     Dosage: 4 A?G/KG, UNK
     Dates: start: 20101222, end: 20101222
  2. NPLATE [Suspect]
     Dates: start: 20101222

REACTIONS (4)
  - HAEMATOLOGICAL MALIGNANCY [None]
  - THROMBOSIS [None]
  - THROMBOCYTOPENIA [None]
  - EMBOLISM ARTERIAL [None]
